FAERS Safety Report 21577006 (Version 1)
Quarter: 2022Q4

REPORT INFORMATION
  Report Type: Spontaneous
  Country: FR (occurrence: FR)
  Receive Date: 20221110
  Receipt Date: 20221110
  Transmission Date: 20230113
  Serious: Yes (Life-Threatening, Hospitalization)
  Sender: FDA-Public Use
  Company Number: FR-PFIZER INC-PV202200075418

PATIENT
  Age: 52 Year
  Sex: Male
  Weight: 70 kg

DRUGS (13)
  1. EPLERENONE [Suspect]
     Active Substance: EPLERENONE
     Indication: Cardiac failure
     Dosage: 12.5 MG, 1X/DAY
     Route: 048
     Dates: start: 20220814
  2. METFORMIN HYDROCHLORIDE [Suspect]
     Active Substance: METFORMIN HYDROCHLORIDE
     Indication: Diabetes mellitus
     Dosage: 700 MG, 1X/DAY
     Route: 048
  3. CLOPIDOGREL BISULFATE [Suspect]
     Active Substance: CLOPIDOGREL BISULFATE
     Indication: Coronary artery disease
     Dosage: 75 MG, 1X/DAY
     Route: 048
     Dates: start: 20220810
  4. NICOTINE [Suspect]
     Active Substance: NICOTINE
     Indication: Smoking cessation therapy
     Dosage: UNK
     Route: 062
  5. CEFTRIAXONE [Suspect]
     Active Substance: CEFTRIAXONE
     Indication: Urinary tract infection
     Dosage: 2 G, QD
     Route: 042
     Dates: start: 20220824, end: 20220907
  6. DAPAGLIFLOZIN [Suspect]
     Active Substance: DAPAGLIFLOZIN
     Indication: Cardiac failure
     Dosage: 10 MG, 1X/DAY
     Route: 048
     Dates: start: 20220814
  7. VYNDAQEL [Suspect]
     Active Substance: TAFAMIDIS MEGLUMINE
     Indication: Cardiac amyloidosis
     Dosage: 61 MG
     Dates: start: 20220814
  8. VICTOZA [Concomitant]
     Active Substance: LIRAGLUTIDE
     Indication: Diabetes mellitus
     Dosage: 1.2 MG, 1X/DAY
     Route: 058
  9. BISOPROLOL [Concomitant]
     Active Substance: BISOPROLOL
     Indication: Coronary artery disease
     Dosage: 2.5 MG, 1X/DAY
     Route: 048
  10. VOGALENE [Concomitant]
     Active Substance: METOPIMAZINE
     Indication: Nausea
     Dosage: 15 MG
     Route: 048
     Dates: start: 20220824
  11. LANSOPRAZOLE [Concomitant]
     Active Substance: LANSOPRAZOLE
     Indication: Prophylaxis
     Dosage: 30 MG, 1X/DAY
     Route: 048
  12. ATORVASTATIN CALCIUM TRIHYDRATE\EZETIMIBE [Concomitant]
     Active Substance: ATORVASTATIN CALCIUM TRIHYDRATE\EZETIMIBE
     Indication: Dyslipidaemia
     Dosage: 1 DF, 1X/DAY
     Route: 048
  13. AMIODARONE [Concomitant]
     Active Substance: AMIODARONE
     Dosage: 200 MG, 1X/DAY
     Route: 048

REACTIONS (4)
  - Malnutrition [Recovering/Resolving]
  - Condition aggravated [Recovering/Resolving]
  - Vomiting [Recovering/Resolving]
  - Nausea [Recovering/Resolving]

NARRATIVE: CASE EVENT DATE: 20220824
